FAERS Safety Report 8092037-9 (Version None)
Quarter: 2012Q1

REPORT INFORMATION
  Report Type: 
  Country: None (occurrence: None)
  Receive Date: 20120129
  Receipt Date: 20111117
  Transmission Date: 20120608
  Serious: No
  Sender: FDA-Public Use
  Company Number: US-ABBOTT-11P-163-0869579-00

PATIENT
  Age: 34 Year
  Sex: Female

DRUGS (6)
  1. ONDANSETRON HCL [Concomitant]
     Indication: NAUSEA
     Dosage: AS NEEDED EVERY 6 HOURS
  2. AMITRIPTYLINE HCL [Concomitant]
     Indication: MIGRAINE
  3. MS CONTIN [Concomitant]
     Indication: ARTHRALGIA
  4. ATIVAN [Concomitant]
     Indication: INSOMNIA
     Dosage: AT BEDTIME
  5. OXYCODONE HCL [Concomitant]
     Indication: BREAKTHROUGH PAIN
     Dosage: AS NEEDED
  6. HUMIRA [Suspect]
     Indication: RHEUMATOID ARTHRITIS
     Dates: start: 20110919, end: 20111017

REACTIONS (5)
  - URINE ABNORMALITY [None]
  - URINARY TRACT INFECTION [None]
  - DYSURIA [None]
  - ORAL HERPES [None]
  - URINE ODOUR ABNORMAL [None]
